FAERS Safety Report 23295559 (Version 1)
Quarter: 2023Q4

REPORT INFORMATION
  Report Type: Report from Study
  Country: US (occurrence: US)
  Receive Date: 20231214
  Receipt Date: 20231214
  Transmission Date: 20240110
  Serious: Yes (Hospitalization)
  Sender: FDA-Public Use
  Company Number: US-ABBVIE-5536080

PATIENT
  Sex: Female

DRUGS (3)
  1. RINVOQ [Suspect]
     Active Substance: UPADACITINIB
     Indication: Colitis ulcerative
     Dosage: LAST ADMIN: 2023
     Route: 048
     Dates: start: 20230619
  2. RINVOQ [Suspect]
     Active Substance: UPADACITINIB
     Indication: Colitis ulcerative
     Dosage: FORM STRENGTH: 30 MILLIGRAM,?EXTENDED RELEASE
     Route: 048
     Dates: start: 202308, end: 20230914
  3. RINVOQ [Suspect]
     Active Substance: UPADACITINIB
     Indication: Colitis ulcerative
     Dosage: FORM STRENGTH: 30 MILLIGRAM,?EXTENDED RELEASE
     Route: 048
     Dates: start: 20231013

REACTIONS (10)
  - Fluid replacement [Unknown]
  - Nausea [Unknown]
  - Condition aggravated [Unknown]
  - Abdominal pain [Unknown]
  - Gastrointestinal disorder [Unknown]
  - Diarrhoea haemorrhagic [Unknown]
  - Diarrhoea [Unknown]
  - Vomiting [Unknown]
  - Therapeutic product effect incomplete [Unknown]
  - Platelet count increased [Unknown]

NARRATIVE: CASE EVENT DATE: 20230101
